FAERS Safety Report 7486668-4 (Version None)
Quarter: 2011Q2

REPORT INFORMATION
  Report Type: 
  Country: None (occurrence: None)
  Receive Date: 20110517
  Receipt Date: 20100809
  Transmission Date: 20111010
  Serious: No
  Sender: FDA-Public Use
  Company Number: US-NOVEN-ALL1-2010-04212

PATIENT

DRUGS (2)
  1. DAYTRANA [Suspect]
     Dosage: 20 MG, 1X/DAY:QD
     Route: 062
     Dates: start: 20070101, end: 20100501
  2. DAYTRANA [Suspect]
     Dosage: 30 MG, 1X/DAY:QD
     Route: 062
     Dates: start: 20100501

REACTIONS (5)
  - IMPULSIVE BEHAVIOUR [None]
  - NEGATIVISM [None]
  - PRODUCT QUALITY ISSUE [None]
  - AGGRESSION [None]
  - DRUG INEFFECTIVE [None]
